FAERS Safety Report 4594668-7 (Version None)
Quarter: 2005Q1

REPORT INFORMATION
  Report Type: 
  Country: None (occurrence: None)
  Receive Date: 20050301
  Receipt Date: 20041209
  Transmission Date: 20050727
  Serious: No
  Sender: FDA-Public Use
  Company Number: US-BRISTOL-MYERS SQUIBB COMPANY-12790507

PATIENT
  Age: 78 Year
  Sex: Male

DRUGS (7)
  1. ERBITUX [Suspect]
     Indication: COLON CANCER RECURRENT
     Route: 042
  2. ALOXI [Concomitant]
     Indication: PREMEDICATION
     Route: 042
  3. DECADRON [Concomitant]
     Indication: PREMEDICATION
     Route: 042
  4. BENADRYL [Concomitant]
     Indication: PREMEDICATION
     Route: 042
  5. AVASTIN [Concomitant]
  6. IRINOTECAN HCL [Concomitant]
  7. XELODA [Concomitant]

REACTIONS (5)
  - CHAPPED LIPS [None]
  - DERMATITIS ACNEIFORM [None]
  - LIP DRY [None]
  - NAIL DISORDER [None]
  - ONYCHORRHEXIS [None]
